FAERS Safety Report 14243169 (Version 6)
Quarter: 2018Q4

REPORT INFORMATION
  Report Type: Spontaneous
  Country: US (occurrence: US)
  Receive Date: 20171201
  Receipt Date: 20181129
  Transmission Date: 20190204
  Serious: Yes (Hospitalization, Other)
  Sender: FDA-Public Use
  Company Number: US-SA-2017SA206746

PATIENT
  Age: 45 Year
  Sex: Male

DRUGS (5)
  1. FABRAZYME [Suspect]
     Active Substance: AGALSIDASE BETA
     Dosage: 80 MG,QOW
     Route: 041
     Dates: start: 20120720
  2. FABRAZYME [Suspect]
     Active Substance: AGALSIDASE BETA
     Dosage: 80 MG,QOW
     Route: 041
     Dates: start: 20120720
  3. FABRAZYME [Suspect]
     Active Substance: AGALSIDASE BETA
     Dosage: 70 MG,QOW
     Route: 041
     Dates: end: 2017
  4. FABRAZYME [Suspect]
     Active Substance: AGALSIDASE BETA
     Indication: FABRY^S DISEASE
     Dosage: 80 MG,QOW
     Route: 041
     Dates: start: 20120720
  5. FABRAZYME [Suspect]
     Active Substance: AGALSIDASE BETA
     Dosage: 80 MG,QOW
     Route: 041
     Dates: start: 20120720

REACTIONS (4)
  - Cardiac infection [Not Recovered/Not Resolved]
  - Headache [Unknown]
  - Staphylococcal infection [Not Recovered/Not Resolved]
  - Weight fluctuation [Unknown]

NARRATIVE: CASE EVENT DATE: 2016
